FAERS Safety Report 8547761-8 (Version None)
Quarter: 2012Q3

REPORT INFORMATION
  Report Type: 
  Country: None (occurrence: None)
  Receive Date: 20120727
  Receipt Date: 20111220
  Transmission Date: 20120928
  Serious: Yes (Hospitalization, Other)
  Sender: FDA-Public Use
  Company Number: US-ASTRAZENECA-2011SE77046

PATIENT
  Sex: Male

DRUGS (4)
  1. SEROQUEL [Suspect]
     Indication: TACHYPHRENIA
     Route: 048
     Dates: start: 20030101
  2. PERPHENAZINE [Concomitant]
     Indication: SCHIZOPHRENIA
  3. SEROQUEL [Suspect]
     Route: 048
  4. KLONOPIN [Concomitant]

REACTIONS (6)
  - PARANOIA [None]
  - SUICIDAL IDEATION [None]
  - BLOOD PRESSURE INCREASED [None]
  - DEPRESSION [None]
  - THERAPEUTIC RESPONSE UNEXPECTED [None]
  - OFF LABEL USE [None]
